FAERS Safety Report 7906212-4 (Version None)
Quarter: 2011Q4

REPORT INFORMATION
  Report Type: 
  Country: None (occurrence: None)
  Receive Date: 20111110
  Receipt Date: 20111103
  Transmission Date: 20120403
  Serious: Yes (Hospitalization, Other)
  Sender: FDA-Public Use
  Company Number: US-ASTELLAS-2011US006467

PATIENT
  Sex: Male
  Weight: 81 kg

DRUGS (3)
  1. ALIMTA [Suspect]
     Indication: NON-SMALL CELL LUNG CANCER
     Dosage: 375 MG/M2, Q3W
     Route: 042
     Dates: start: 20110404, end: 20110928
  2. ERLOTINIB HYDROCHLORIDE [Suspect]
     Indication: NON-SMALL CELL LUNG CANCER
     Dosage: 100 MG, CYCLIC (QD DAYS 2-16)
     Route: 048
     Dates: start: 20110404, end: 20111009
  3. MORPHINE [Suspect]
     Indication: PAIN
     Dosage: UNK
     Route: 065

REACTIONS (18)
  - THROMBOCYTOPENIA [None]
  - OESOPHAGEAL ULCER [None]
  - NAUSEA [None]
  - STOMATITIS [None]
  - MENTAL STATUS CHANGES [None]
  - HYPOAESTHESIA [None]
  - BLOOD CREATININE INCREASED [None]
  - HAEMOGLOBIN ABNORMAL [None]
  - HYPOPHAGIA [None]
  - INCORRECT DOSE ADMINISTERED [None]
  - HAEMATOCRIT ABNORMAL [None]
  - DEHYDRATION [None]
  - VOMITING [None]
  - PNEUMONIA [None]
  - GASTRITIS HAEMORRHAGIC [None]
  - INAPPROPRIATE SCHEDULE OF DRUG ADMINISTRATION [None]
  - ANAEMIA [None]
  - DIARRHOEA [None]
